FAERS Safety Report 24338629 (Version 1)
Quarter: 2024Q3

REPORT INFORMATION
  Report Type: Spontaneous
  Country: US (occurrence: US)
  Receive Date: 20240919
  Receipt Date: 20240919
  Transmission Date: 20241017
  Serious: No
  Sender: MUNDIPHARMA EDO
  Company Number: US-Mundipharma Research Limited-2161776

PATIENT
  Sex: Female

DRUGS (1)
  1. REZZAYO [Suspect]
     Active Substance: REZAFUNGIN
     Indication: Osteomyelitis

REACTIONS (1)
  - Off label use [Unknown]
